FAERS Safety Report 9473888 (Version 1)
Quarter: 2013Q3

REPORT INFORMATION
  Report Type: Spontaneous
  Country: US (occurrence: US)
  Receive Date: 20130823
  Receipt Date: 20130823
  Transmission Date: 20140515
  Serious: Yes (Other)
  Sender: FDA-Public Use
  Company Number: CHPA2013US013151

PATIENT
  Age: 64 Year
  Sex: Male

DRUGS (2)
  1. ASCRIPTIN BUFFERED REG STRENGTH TABLETS [Suspect]
     Indication: POSTOPERATIVE ANALGESIA
     Dosage: 2 DF, QD(PRN)
     Route: 048
     Dates: start: 1974
  2. ASCRIPTIN BUFFERED MAX STRENGTH CAPLETS [Suspect]
     Indication: PAIN
     Dosage: UNK, UNK
     Dates: start: 1974

REACTIONS (4)
  - Arthritis [Recovering/Resolving]
  - Scar [Recovering/Resolving]
  - Fall [Unknown]
  - Expired drug administered [Unknown]
